FAERS Safety Report 4659476-7 (Version None)
Quarter: 2005Q2

REPORT INFORMATION
  Report Type: 
  Country: None (occurrence: None)
  Receive Date: 20050412
  Receipt Date: 20041220
  Transmission Date: 20051028
  Serious: No
  Sender: FDA-Public Use
  Company Number: 2004S1000282

PATIENT
  Age: 38 Year
  Sex: Female

DRUGS (37)
  1. CUBICIN [Suspect]
     Indication: SEPSIS
     Dosage: 250 MG; Q24H; IV
     Route: 042
     Dates: start: 20041216, end: 20050126
  2. TOTAL PARENTERAL [Concomitant]
  3. NUTRITION [Concomitant]
  4. ALBUMIN (HUMAN) [Concomitant]
  5. AMPHOTERICIN B [Concomitant]
  6. CEFEPIME [Concomitant]
  7. CIPROFLOXACIN HCL [Concomitant]
  8. DIPHENHYDRAMINE HCL [Concomitant]
  9. FAT EMULSION [Concomitant]
  10. FENTANYL [Concomitant]
  11. GABAPENTIN [Concomitant]
  12. GENTAMICIN [Concomitant]
  13. HYDROCORTISONE [Concomitant]
  14. HYDROMORPHONE HCL [Concomitant]
  15. IMIPENEM/CILASTATIN [Concomitant]
  16. INSULIN [Concomitant]
  17. LANSOPRAZOLE [Concomitant]
  18. LORAZEPAM [Concomitant]
  19. MAGNESIUM SULFATE [Concomitant]
  20. MEDROXYPROGESTERONE [Concomitant]
  21. METOPROLOL [Concomitant]
  22. METRONIDAZOLE [Concomitant]
  23. MIRTAZAPINE [Concomitant]
  24. NOREPINEPHRINE [Concomitant]
  25. OCTREOTIDE ACETATE [Concomitant]
  26. POTASSIUM PHOSPHATES [Concomitant]
  27. PROPOFOL [Concomitant]
  28. SODIUM BICARBONATE [Concomitant]
  29. SODIUM PHOSPHATE [Concomitant]
  30. SUCRALFATE [Concomitant]
  31. BACTRIM [Concomitant]
  32. TACROLIMUS [Concomitant]
  33. TIMENTIN [Concomitant]
  34. TOBRAMYCIN [Concomitant]
  35. URSODIOL [Concomitant]
  36. VANCOMYCIN [Concomitant]
  37. VASOPRESSIN [Concomitant]

REACTIONS (2)
  - INTERNATIONAL NORMALISED RATIO INCREASED [None]
  - LIVER FUNCTION TEST ABNORMAL [None]
